FAERS Safety Report 9748311 (Version 1)
Quarter: 2013Q4

REPORT INFORMATION
  Report Type: Spontaneous
  Country: TR (occurrence: None)
  Receive Date: 20131209
  Receipt Date: 20131209
  Transmission Date: 20140711
  Serious: Yes (Hospitalization)
  Sender: FDA-Public Use
  Company Number: 2013P1021551

PATIENT
  Age: 48 Year
  Sex: Male

DRUGS (1)
  1. FENTANYL [Suspect]
     Indication: ABDOMINAL PAIN
     Route: 062

REACTIONS (11)
  - Pain [None]
  - Restlessness [None]
  - Nausea [None]
  - Lacrimation increased [None]
  - Rhinorrhoea [None]
  - Hyperhidrosis [None]
  - Tremor [None]
  - Drug withdrawal syndrome [None]
  - Depression [None]
  - Feeling cold [None]
  - Chills [None]
